FAERS Safety Report 7999425-7 (Version None)
Quarter: 2011Q4

REPORT INFORMATION
  Report Type: 
  Country: None (occurrence: None)
  Receive Date: 20111221
  Receipt Date: 20111212
  Transmission Date: 20120403
  Serious: Yes (Death, Disabling)
  Sender: FDA-Public Use
  Company Number: NG-ABBOTT-11P-121-0862181-01

PATIENT
  Sex: Female

DRUGS (7)
  1. LOPINAVIR/RITONAVIR [Suspect]
     Indication: HIV INFECTION
     Dosage: 200 / 50 MG
     Route: 048
     Dates: start: 20110531, end: 20111129
  2. FLUCONAZOLE [Concomitant]
     Indication: ANTIFUNGAL PROPHYLAXIS
     Dates: start: 20110823, end: 20111129
  3. AUGMENTIN [Concomitant]
     Indication: ANTIBIOTIC PROPHYLAXIS
     Dates: start: 20110915, end: 20110925
  4. COMBIVIR [Concomitant]
     Indication: PRODUCT USED FOR UNKNOWN INDICATION
     Dosage: 300 MG/ 150 MG
     Dates: start: 20110531, end: 20111129
  5. MULTIVITE [Concomitant]
     Indication: VITAMIN SUPPLEMENTATION
     Dosage: FIXED DOSE
     Dates: start: 20110809, end: 20110922
  6. IBUPROFEN [Concomitant]
     Indication: ANTIINFLAMMATORY THERAPY
     Dates: start: 20110909, end: 20110920
  7. SULFA/TMX [Concomitant]
     Indication: ANTIBIOTIC PROPHYLAXIS
     Dates: start: 20110823, end: 20111129

REACTIONS (1)
  - EXTRAPULMONARY TUBERCULOSIS [None]
